FAERS Safety Report 17100507 (Version 4)
Quarter: 2020Q3

REPORT INFORMATION
  Report Type: Spontaneous
  Country: US (occurrence: US)
  Receive Date: 20191202
  Receipt Date: 20200820
  Transmission Date: 20201102
  Serious: Yes (Other)
  Sender: FDA-Public Use
  Company Number: US-JNJFOC-20191139746

PATIENT
  Age: 54 Year
  Sex: Female
  Weight: 96.25 kg

DRUGS (2)
  1. STELARA [Suspect]
     Active Substance: USTEKINUMAB
     Indication: CROHN^S DISEASE
     Route: 058
     Dates: start: 2019
  2. STELARA [Suspect]
     Active Substance: USTEKINUMAB

REACTIONS (5)
  - Anxiety [Unknown]
  - Product dose omission issue [Unknown]
  - Product packaging issue [Unknown]
  - Drug delivery system malfunction [Unknown]
  - Product label issue [Unknown]

NARRATIVE: CASE EVENT DATE: 201911
